FAERS Safety Report 9154572 (Version 1)
Quarter: 2013Q1

REPORT INFORMATION
  Report Type: Spontaneous
  Country: US (occurrence: None)
  Receive Date: 20130308
  Receipt Date: 20130308
  Transmission Date: 20140127
  Serious: Yes (Other)
  Sender: FDA-Public Use
  Company Number: None

PATIENT
  Sex: Female
  Weight: 81.65 kg

DRUGS (1)
  1. VENLAFAXINE [Suspect]
     Dosage: 75MG QD PO
     Route: 048
     Dates: start: 20130222, end: 20130305

REACTIONS (3)
  - Feeling abnormal [None]
  - Dizziness [None]
  - Decreased activity [None]
